FAERS Safety Report 6206975-2 (Version None)
Quarter: 2009Q2

REPORT INFORMATION
  Report Type: 
  Country: None (occurrence: None)
  Receive Date: 20090528
  Receipt Date: 20090518
  Transmission Date: 20091009
  Serious: Yes (Other)
  Sender: FDA-Public Use
  Company Number: B0575945A

PATIENT
  Sex: Female

DRUGS (8)
  1. FLUTICASONE PROPIONATE [Suspect]
     Indication: ASTHMA
     Dosage: 250MCG TWICE PER DAY
     Route: 055
     Dates: end: 20090224
  2. FLUTICASONE PROPIONATE [Suspect]
     Dosage: 500MCG TWICE PER DAY
     Route: 055
     Dates: start: 20090225
  3. SERETIDE [Concomitant]
     Route: 055
  4. ATROVENT [Concomitant]
     Route: 055
  5. VENTOLIN [Concomitant]
     Dosage: 200MCG FOUR TIMES PER DAY
     Route: 055
     Dates: start: 20090225, end: 20090312
  6. DAKTARIN [Concomitant]
     Route: 048
     Dates: start: 20090225
  7. PREDNISOLONE [Concomitant]
     Dosage: 30MG PER DAY
     Route: 048
     Dates: start: 20090219, end: 20090226
  8. AMOXICILLIN AND CLAVULANATE POTASSIUM [Concomitant]
     Dosage: 625MG THREE TIMES PER DAY
     Route: 048
     Dates: start: 20090223, end: 20090302

REACTIONS (2)
  - ABASIA [None]
  - MUSCULAR WEAKNESS [None]
